FAERS Safety Report 19232257 (Version 4)
Quarter: 2021Q2

REPORT INFORMATION
  Report Type: Report from Study
  Country: JP (occurrence: JP)
  Receive Date: 20210507
  Receipt Date: 20210611
  Transmission Date: 20210717
  Serious: Yes (Other)
  Sender: FDA-Public Use
  Company Number: JP-AMRYT PHARMACEUTICALS DAC-AEGR005162

PATIENT

DRUGS (1)
  1. METRELEPTIN SHIONOGI [Suspect]
     Active Substance: METRELEPTIN
     Indication: LIPOATROPHY
     Route: 058

REACTIONS (2)
  - Therapeutic response decreased [Unknown]
  - Blood triglycerides increased [Not Recovered/Not Resolved]
